FAERS Safety Report 5935926-0 (Version None)
Quarter: 2008Q4

REPORT INFORMATION
  Report Type: 
  Country: None (occurrence: None)
  Receive Date: 20081030
  Receipt Date: 20081021
  Transmission Date: 20090506
  Serious: No
  Sender: FDA-Public Use
  Company Number: JP-ELI_LILLY_AND_COMPANY-JP200810000870

PATIENT
  Sex: Female
  Weight: 53 kg

DRUGS (6)
  1. GEMZAR [Suspect]
     Indication: PANCREATIC CARCINOMA STAGE IV
     Dosage: 1200 MG, OTHER
     Route: 042
     Dates: start: 20080704, end: 20080912
  2. GEMZAR [Suspect]
     Dosage: UNK, UNK
     Route: 042
     Dates: start: 20081003, end: 20081003
  3. DEXART [Concomitant]
     Indication: PANCREATIC CARCINOMA STAGE IV
     Dosage: 8 MG, OTHER
     Route: 042
     Dates: start: 20080704, end: 20080912
  4. RINDERON /00008501/ [Concomitant]
     Indication: PROPHYLAXIS
     Dosage: 1 MG, DAILY (1/D)
     Route: 048
     Dates: start: 20080822, end: 20081003
  5. NASEA [Concomitant]
     Indication: PROPHYLAXIS
     Dosage: 0.3 MG, OTHER
     Route: 042
     Dates: start: 20080704, end: 20080912
  6. LANSOPRAZOLE [Concomitant]
     Indication: GASTRIC ULCER
     Dosage: 15 MG, DAILY (1/D)
     Route: 048
     Dates: start: 20080718

REACTIONS (2)
  - HEPATIC STEATOSIS [None]
  - WHITE BLOOD CELL COUNT DECREASED [None]
